FAERS Safety Report 8222433-8 (Version None)
Quarter: 2012Q1

REPORT INFORMATION
  Report Type: 
  Country: None (occurrence: None)
  Receive Date: 20120320
  Receipt Date: 20120314
  Transmission Date: 20120608
  Serious: Yes (Death, Hospitalization, Other)
  Sender: FDA-Public Use
  Company Number: US-ELI_LILLY_AND_COMPANY-US201203004804

PATIENT
  Sex: Female

DRUGS (8)
  1. FUROSEMIDE [Concomitant]
     Dosage: UNK
  2. ASPIRIN [Concomitant]
  3. DILTIAZEM HCL [Concomitant]
     Dosage: UNK
  4. HUMULIN 70/30 [Suspect]
     Indication: TYPE 2 DIABETES MELLITUS
     Dosage: 70 U, BID
     Dates: start: 20000101
  5. GLIPIZIDE [Concomitant]
  6. OXYBUTYNIN [Concomitant]
  7. ACTONEL [Concomitant]
  8. METFORMIN HCL [Concomitant]

REACTIONS (9)
  - MALAISE [None]
  - RENAL DISORDER [None]
  - GENERAL PHYSICAL HEALTH DETERIORATION [None]
  - RETINAL HAEMORRHAGE [None]
  - DEATH [None]
  - NEPHROLITHIASIS [None]
  - URINARY TRACT INFECTION [None]
  - DIALYSIS [None]
  - KIDNEY INFECTION [None]
